FAERS Safety Report 5446136-8 (Version None)
Quarter: 2007Q3

REPORT INFORMATION
  Report Type: 
  Country: None (occurrence: None)
  Receive Date: 20070904
  Receipt Date: 20070816
  Transmission Date: 20080115
  Serious: Yes (Death)
  Sender: FDA-Public Use
  Company Number: 6036023

PATIENT
  Age: 75 Year
  Sex: Female

DRUGS (3)
  1. CARBAMAZEPINE [Suspect]
     Indication: BIPOLAR DISORDER
     Dosage: 400 MG (200 MG,2 IN 1 D); ORAL
     Route: 048
  2. SERTRALINE [Suspect]
     Indication: DEPRESSION
     Dosage: 100 MG (50 MG,2 IN 1D);ORAL
     Route: 048
  3. PERICIAZINE (PERICIAZINE) [Suspect]
     Indication: BIPOLAR DISORDER
     Dosage: 15 MG (5 MG,3 IN 1 D);

REACTIONS (6)
  - ACUTE RESPIRATORY DISTRESS SYNDROME [None]
  - LUNG INJURY [None]
  - MULTI-ORGAN FAILURE [None]
  - PNEUMONIA [None]
  - PULMONARY OEDEMA [None]
  - RESPIRATORY FAILURE [None]
